FAERS Safety Report 5126244-1 (Version None)
Quarter: 2006Q4

REPORT INFORMATION
  Report Type: 
  Country: None (occurrence: None)
  Receive Date: 20061012
  Receipt Date: 20060519
  Transmission Date: 20070319
  Serious: Yes (Hospitalization)
  Sender: FDA-Public Use
  Company Number: TR-ABBOTT-06P-161-0333790-00

PATIENT
  Sex: Female

DRUGS (9)
  1. VALPROIC ACID [Suspect]
     Indication: TONIC CONVULSION
     Route: 065
     Dates: start: 20041101, end: 20050901
  2. CARBAMAZEPINE [Suspect]
     Indication: TONIC CONVULSION
     Route: 065
  3. INOSINE PRANOBEX [Suspect]
     Indication: TONIC CONVULSION
     Route: 065
  4. TOPIRAMATE [Concomitant]
     Indication: EPILEPSY
  5. CARBAMAZEPINE [Concomitant]
     Indication: EPILEPSY
  6. LEVETIRACETAM [Concomitant]
     Indication: EPILEPSY
  7. INOSINE PRANOBEX [Concomitant]
     Indication: EPILEPSY
  8. INTERFERON BETA [Concomitant]
     Indication: EPILEPSY
  9. BACLOFEN [Concomitant]
     Indication: EPILEPSY

REACTIONS (3)
  - APALLIC SYNDROME [None]
  - DRUG INEFFECTIVE [None]
  - SUBACUTE SCLEROSING PANENCEPHALITIS [None]
